FAERS Safety Report 5579332-X (Version None)
Quarter: 2008Q1

REPORT INFORMATION
  Report Type: 
  Country: None (occurrence: None)
  Receive Date: 20080102
  Receipt Date: 20071219
  Transmission Date: 20080703
  Serious: Yes (Hospitalization)
  Sender: FDA-Public Use
  Company Number: ES-ELI_LILLY_AND_COMPANY-ES200712004092

PATIENT
  Age: 62 Year
  Sex: Male

DRUGS (4)
  1. FORTEO [Suspect]
     Indication: OSTEOPOROSIS
     Dosage: 20 UG, UNKNOWN
     Route: 058
     Dates: start: 20071130
  2. COBAL [Concomitant]
     Indication: HYPERTENSION
     Dosage: UNK, UNKNOWN
  3. DAFALGAN [Concomitant]
     Indication: PAIN
     Dosage: UNK, UNKNOWN
  4. CELEBREX [Concomitant]
     Indication: PAIN
     Dosage: UNK, UNKNOWN

REACTIONS (6)
  - DRY MOUTH [None]
  - EYE DISORDER [None]
  - HYPERCALCAEMIA [None]
  - MALAISE [None]
  - RENAL FAILURE [None]
  - WEIGHT DECREASED [None]
